FAERS Safety Report 7716022-9 (Version None)
Quarter: 2011Q3

REPORT INFORMATION
  Report Type: 
  Country: None (occurrence: None)
  Receive Date: 20110829
  Receipt Date: 20110819
  Transmission Date: 20111222
  Serious: Yes (Hospitalization)
  Sender: FDA-Public Use
  Company Number: CO-GENZYME-FABR-1002100

PATIENT
  Sex: Male
  Weight: 86 kg

DRUGS (1)
  1. FABRAZYME [Suspect]
     Indication: FABRY'S DISEASE
     Dosage: 85 MG, UNK
     Route: 042
     Dates: start: 20050930

REACTIONS (2)
  - ISCHAEMIA [None]
  - ABDOMINAL PAIN UPPER [None]
